FAERS Safety Report 8887893 (Version 1)
Quarter: 2012Q4

REPORT INFORMATION
  Report Type: Spontaneous
  Country: DK (occurrence: None)
  Receive Date: 20121031
  Receipt Date: 20121031
  Transmission Date: 20130627
  Serious: Yes (Other)
  Sender: FDA-Public Use
  Company Number: 2012MA012670

PATIENT
  Age: 82 Year
  Sex: Male

DRUGS (8)
  1. SPIRONOLACTONE [Suspect]
     Indication: HYPERTENSION
     Dates: start: 20100619, end: 20100629
  2. INSULIN [Concomitant]
  3. CANDERSARTAN [Concomitant]
  4. FUROSEMIDE [Concomitant]
  5. COD LIVER OIL [Concomitant]
  6. GLUCOSAMINE [Concomitant]
  7. NASEPTIN [Concomitant]
  8. PEPPERMINT OIL [Concomitant]

REACTIONS (21)
  - Muscular weakness [None]
  - Abdominal discomfort [None]
  - Swelling [None]
  - Gingival pain [None]
  - Glossodynia [None]
  - Lip swelling [None]
  - Jaw disorder [None]
  - Hypoaesthesia [None]
  - Visual impairment [None]
  - Weight increased [None]
  - Waist circumference increased [None]
  - Vision blurred [None]
  - Discomfort [None]
  - Body height decreased [None]
  - Cough [None]
  - Hiatus hernia [None]
  - Hypertension [None]
  - Headache [None]
  - Fall [None]
  - Oedema peripheral [None]
  - Sensation of heaviness [None]
